FAERS Safety Report 16066076 (Version 3)
Quarter: 2020Q3

REPORT INFORMATION
  Report Type: Spontaneous
  Country: JP (occurrence: JP)
  Receive Date: 20190313
  Receipt Date: 20200716
  Transmission Date: 20201102
  Serious: Yes (Hospitalization)
  Sender: FDA-Public Use
  Company Number: JP-UCBSA-2019008131

PATIENT
  Age: 14 Year
  Sex: Female
  Weight: 55 kg

DRUGS (9)
  1. NOBELBAR [Suspect]
     Active Substance: PHENOBARBITAL SODIUM
     Dosage: 137.5  MG DAILY
     Route: 042
     Dates: start: 20190208, end: 20190211
  2. CERCINE [Concomitant]
     Active Substance: DIAZEPAM
     Indication: STATUS EPILEPTICUS
     Route: 042
  3. FOSPHENYTOIN [Concomitant]
     Active Substance: FOSPHENYTOIN
     Indication: STATUS EPILEPTICUS
     Route: 042
  4. PHENOBARBITAL SODIUM. [Concomitant]
     Active Substance: PHENOBARBITAL SODIUM
     Indication: STATUS EPILEPTICUS
  5. NOBELBAR [Suspect]
     Active Substance: PHENOBARBITAL SODIUM
     Indication: STATUS EPILEPTICUS
     Dosage: 750MG DAILY
     Route: 042
     Dates: start: 20190207, end: 20190207
  6. NOBELBAR [Suspect]
     Active Substance: PHENOBARBITAL SODIUM
     Dosage: 55 MILLIGRAM, 2X/DAY (BID)
     Route: 042
     Dates: start: 20190214, end: 20190215
  7. NOBELBAR [Suspect]
     Active Substance: PHENOBARBITAL SODIUM
     Dosage: 110 MG DAILY
     Route: 042
     Dates: start: 20190212, end: 20190213
  8. VIMPAT [Suspect]
     Active Substance: LACOSAMIDE
     Indication: PARTIAL SEIZURES WITH SECONDARY GENERALISATION
     Dosage: 50 MG, 2X/DAY (BID)
     Route: 048
     Dates: start: 20190209, end: 20190224
  9. MIDAZOLAM. [Concomitant]
     Active Substance: MIDAZOLAM
     Indication: STATUS EPILEPTICUS
     Route: 042

REACTIONS (3)
  - Hallucination, auditory [Recovering/Resolving]
  - Depersonalisation/derealisation disorder [Recovering/Resolving]
  - Hallucination, visual [Recovering/Resolving]

NARRATIVE: CASE EVENT DATE: 20190214
